FAERS Safety Report 6818972-4 (Version None)
Quarter: 2010Q3

REPORT INFORMATION
  Report Type: 
  Country: None (occurrence: None)
  Receive Date: 20100702
  Receipt Date: 20100623
  Transmission Date: 20110219
  Serious: Yes (Other)
  Sender: FDA-Public Use
  Company Number: 2010SP035604

PATIENT
  Age: 51 Year
  Sex: Male

DRUGS (2)
  1. MIRTAZAPINE [Suspect]
     Indication: PRODUCT USED FOR UNKNOWN INDICATION
     Dosage: 180 MG;QD;PO
     Route: 048
  2. BENZODIAZEPINES (BENZODIAZEPINE DERIBATIVES) [Suspect]
     Indication: PRODUCT USED FOR UNKNOWN INDICATION
     Dosage: ONCE;PO
     Route: 048

REACTIONS (4)
  - DRUG INTERACTION [None]
  - GENERALISED ERYTHEMA [None]
  - OVERDOSE [None]
  - SOMNOLENCE [None]
